FAERS Safety Report 5018535-X (Version None)
Quarter: 2006Q2

REPORT INFORMATION
  Report Type: 
  Country: None (occurrence: None)
  Receive Date: 20060414
  Receipt Date: 20051223
  Transmission Date: 20061013
  Serious: No
  Sender: FDA-Public Use
  Company Number: 2005SP004510

PATIENT
  Age: 80 Year
  Sex: Male
  Weight: 70.3075 kg

DRUGS (10)
  1. LUNESTA [Suspect]
     Indication: MIDDLE INSOMNIA
     Dosage: SEE IMAGE
     Route: 048
     Dates: start: 20050101
  2. LUNESTA [Suspect]
     Indication: MIDDLE INSOMNIA
     Dosage: SEE IMAGE
     Route: 048
     Dates: start: 20051101
  3. PROPOXYPHENE HYDROCHLORIDE [Concomitant]
  4. FOLATE SODIUM [Concomitant]
  5. DANAZOL [Concomitant]
  6. TAMSULOSIN HYDROCHLORIDE [Concomitant]
  7. ATACAND [Concomitant]
  8. ^SPF SUSPENSION^ [Concomitant]
  9. MIRALAX [Concomitant]
  10. SIMVASTATIN [Concomitant]

REACTIONS (2)
  - DIZZINESS [None]
  - SOMNOLENCE [None]
